FAERS Safety Report 9989846 (Version 1)
Quarter: 2014Q1

REPORT INFORMATION
  Report Type: Report from Study
  Country: US (occurrence: US)
  Receive Date: 20140310
  Receipt Date: 20140310
  Transmission Date: 20141002
  Serious: No
  Sender: FDA-Public Use
  Company Number: US-ABBVIE-13P-163-1134041-00

PATIENT
  Age: 27 Year
  Sex: Female
  Weight: 48.12 kg

DRUGS (1)
  1. HUMIRA [Suspect]
     Indication: CROHN^S DISEASE
     Route: 058

REACTIONS (1)
  - Urticaria [Recovered/Resolved]
